FAERS Safety Report 19742989 (Version 1)
Quarter: 2021Q3

REPORT INFORMATION
  Report Type: Spontaneous
  Country: US (occurrence: US)
  Receive Date: 20210825
  Receipt Date: 20210825
  Transmission Date: 20211014
  Serious: Yes (Hospitalization)
  Sender: FDA-Public Use
  Company Number: US-UNITED THERAPEUTICS-UNT-2021-011198

PATIENT
  Age: 25 Year
  Sex: Male
  Weight: 100.68 kg

DRUGS (6)
  1. REMODULIN [Suspect]
     Active Substance: TREPROSTINIL
     Indication: PULMONARY ARTERIAL HYPERTENSION
     Dosage: UNK, CONTINUING
     Route: 041
     Dates: start: 20130106
  2. REMODULIN [Suspect]
     Active Substance: TREPROSTINIL
     Dosage: 0.139 ?G/KG, CONTINUING
     Route: 041
     Dates: end: 202106
  3. VELETRI [Suspect]
     Active Substance: EPOPROSTENOL
     Indication: PULMONARY ARTERIAL HYPERTENSION
     Dosage: 0.075 ?G/KG, CONTINUING
     Route: 042
     Dates: start: 202106
  4. VELETRI [Suspect]
     Active Substance: EPOPROSTENOL
     Dosage: 0.079 ?G/KG, CONTINUING
     Route: 042
  5. ADCIRCA [Concomitant]
     Active Substance: TADALAFIL
     Indication: PULMONARY ARTERIAL HYPERTENSION
     Dosage: UNK
     Route: 065
  6. OPSUMIT [Suspect]
     Active Substance: MACITENTAN
     Indication: PULMONARY ARTERIAL HYPERTENSION
     Dosage: 10 MG, QD
     Route: 048

REACTIONS (7)
  - Decreased appetite [Not Recovered/Not Resolved]
  - Pulmonary function test decreased [Unknown]
  - Heart rate increased [Unknown]
  - Catheter site scab [Unknown]
  - Rash [Unknown]
  - Dyspnoea [Unknown]
  - Haemoptysis [Recovering/Resolving]

NARRATIVE: CASE EVENT DATE: 202106
